FAERS Safety Report 9031925 (Version 1)
Quarter: 2013Q1

REPORT INFORMATION
  Report Type: Spontaneous
  Country: US (occurrence: US)
  Receive Date: 20130125
  Receipt Date: 20130125
  Transmission Date: 20140127
  Serious: Yes (Hospitalization)
  Sender: FDA-Public Use
  Company Number: US-SANOFI-AVENTIS-2013SA004882

PATIENT
  Age: 71 Year
  Sex: Male
  Weight: 84 kg

DRUGS (21)
  1. LASIX [Suspect]
     Indication: OSTEOARTHRITIS
     Dates: start: 2000
  2. BLINDED THERAPY [Suspect]
     Indication: OSTEOARTHRITIS
     Route: 048
     Dates: start: 20120907, end: 20121107
  3. BLINDED THERAPY [Suspect]
     Indication: RHEUMATOID ARTHRITIS
     Route: 048
     Dates: start: 20120907, end: 20121107
  4. ESOMEPRAZOLE [Concomitant]
  5. CHONDROITIN W/GLUCOSAMINE [Concomitant]
     Indication: OSTEOARTHRITIS
     Dates: start: 1979
  6. TAMSULOSIN [Concomitant]
     Dates: start: 2005
  7. PLAVIX [Concomitant]
     Indication: TRANSIENT ISCHAEMIC ATTACK
     Dates: start: 2000
  8. SOLIFENACIN SUCCINATE [Concomitant]
     Dates: start: 2007
  9. DOCUSATE SODIUM [Concomitant]
     Dates: start: 2003
  10. CALCIUM CARBONATE W/VITAMIN D [Concomitant]
     Dates: start: 1996
  11. MAGNESIUM [Concomitant]
     Dates: start: 1998
  12. GLIPIZIDE [Concomitant]
     Dates: start: 2004
  13. LANTUS [Concomitant]
     Dates: start: 2006
  14. SIMVASTATIN [Concomitant]
     Dates: start: 2002
  15. OMEPRAZOLE [Concomitant]
     Dates: start: 1982
  16. HYDROCHLOROTHIAZIDE [Concomitant]
     Dates: start: 2004
  17. LISINOPRIL [Concomitant]
     Dates: start: 2004
  18. ESAPENT [Concomitant]
     Dates: start: 1999
  19. FERROUS SULPHATE [Concomitant]
     Dates: start: 2002
  20. ACETYLSALICYLIC ACID [Concomitant]
     Dates: start: 2000
  21. TRAMADOL [Concomitant]
     Dates: start: 20120913

REACTIONS (1)
  - Presyncope [Recovered/Resolved]
